FAERS Safety Report 19165734 (Version 6)
Quarter: 2021Q3

REPORT INFORMATION
  Report Type: Report from Study
  Country: US (occurrence: US)
  Receive Date: 20210421
  Receipt Date: 20210930
  Transmission Date: 20211014
  Serious: Yes (Hospitalization, Other)
  Sender: FDA-Public Use
  Company Number: US-TAKEDA-US201719287

PATIENT
  Sex: Female
  Weight: 138 kg

DRUGS (33)
  1. C1 INHIBITOR (HUMAN) [Suspect]
     Active Substance: HUMAN C1-ESTERASE INHIBITOR
     Indication: IMMUNE SYSTEM DISORDER
     Dosage: 2500 IU, EVERY 3 DAYS
     Route: 042
     Dates: start: 20160714
  2. TAKHZYRO [Suspect]
     Active Substance: LANADELUMAB-FLYO
     Indication: ILLNESS
  3. KALBITOR [Suspect]
     Active Substance: ECALLANTIDE
     Indication: HEREDITARY ANGIOEDEMA
     Dosage: 30 MG, AS REQ^D
     Route: 058
     Dates: start: 20161227
  4. SODIUM CHLORIDE. [Concomitant]
     Active Substance: SODIUM CHLORIDE
     Route: 065
  5. FIRAZYR [Suspect]
     Active Substance: ICATIBANT ACETATE
     Indication: ILLNESS
  6. METOPROLOL SUCCINATE. [Concomitant]
     Active Substance: METOPROLOL SUCCINATE
     Route: 065
  7. DICLOFENAC [Concomitant]
     Active Substance: DICLOFENAC
     Route: 065
  8. C1 INHIBITOR (HUMAN) [Suspect]
     Active Substance: HUMAN C1-ESTERASE INHIBITOR
     Indication: IMMUNE SYSTEM DISORDER
     Dosage: 2500 IU, EVERY 3 DAYS
     Route: 042
     Dates: start: 20160714
  9. DOXYCYCLINE. [Concomitant]
     Active Substance: DOXYCYCLINE
     Dosage: UNK
     Route: 065
  10. OMEPRAZOLE. [Concomitant]
     Active Substance: OMEPRAZOLE
     Dosage: UNK
     Route: 065
  11. MIRENA [Concomitant]
     Active Substance: LEVONORGESTREL
     Route: 065
  12. VITAMIN D3 [Concomitant]
     Active Substance: CHOLECALCIFEROL
     Dosage: UNK
     Route: 065
  13. FIRAZYR [Suspect]
     Active Substance: ICATIBANT ACETATE
     Indication: INTERSTITIAL LUNG DISEASE
     Dosage: 30 MILLIGRAM
     Route: 058
     Dates: start: 20160225
  14. SERTRALINE [Concomitant]
     Active Substance: SERTRALINE HYDROCHLORIDE
     Dosage: UNK
     Route: 065
  15. BUSPIRONE HCL [Concomitant]
     Active Substance: BUSPIRONE HYDROCHLORIDE
     Route: 065
  16. LAMICTAL [Concomitant]
     Active Substance: LAMOTRIGINE
     Route: 065
  17. MAGNESIUM [Concomitant]
     Active Substance: MAGNESIUM
     Dosage: UNK
     Route: 065
  18. C1 INHIBITOR (HUMAN) [Suspect]
     Active Substance: HUMAN C1-ESTERASE INHIBITOR
     Indication: IMMUNE SYSTEM DISORDER
     Dosage: 2500 IU, EVERY 3 DAYS
     Route: 042
     Dates: start: 20160714
  19. TAKHZYRO [Suspect]
     Active Substance: LANADELUMAB-FLYO
     Indication: IMMUNE SYSTEM DISORDER
     Dosage: 300 MILLIGRAM, Q2WEEKS
     Route: 058
     Dates: start: 20201022
  20. FIRAZYR [Suspect]
     Active Substance: ICATIBANT ACETATE
     Indication: IMMUNE SYSTEM DISORDER
     Dosage: 10 MG/ML,3 ML SYRINGE , AS REQ^D
     Route: 058
     Dates: start: 20160609
  21. FIRAZYR [Suspect]
     Active Substance: ICATIBANT ACETATE
     Indication: ILLNESS
  22. DIPHENHYDRAMINE. [Concomitant]
     Active Substance: DIPHENHYDRAMINE
     Route: 065
  23. TAKHZYRO [Suspect]
     Active Substance: LANADELUMAB-FLYO
     Indication: INTERSTITIAL LUNG DISEASE
  24. STERILE WATER [Concomitant]
     Active Substance: WATER
     Route: 065
  25. EPIPEN [Concomitant]
     Active Substance: EPINEPHRINE
     Route: 065
  26. ORTHO MICRONOR [Concomitant]
     Active Substance: NORETHINDRONE
     Route: 065
  27. DULOXETINE HCL [Concomitant]
     Active Substance: DULOXETINE HYDROCHLORIDE
     Dosage: UNK
     Route: 065
  28. ASHWAGANDHA ROOT [Concomitant]
     Dosage: UNK
     Route: 065
  29. FIRAZYR [Suspect]
     Active Substance: ICATIBANT ACETATE
     Indication: IMMUNE SYSTEM DISORDER
     Dosage: 10 MG/ML,3 ML SYRINGE , AS REQ^D
     Route: 058
     Dates: start: 20160609
  30. FIRAZYR [Suspect]
     Active Substance: ICATIBANT ACETATE
     Indication: INTERSTITIAL LUNG DISEASE
     Dosage: 30 MILLIGRAM
     Route: 058
     Dates: start: 20160225
  31. HEPARIN [Concomitant]
     Active Substance: HEPARIN SODIUM
     Dosage: UNK
     Route: 065
  32. TRANEXAMIC [Concomitant]
     Active Substance: TRANEXAMIC ACID
     Route: 065
  33. CALCIUM [Concomitant]
     Active Substance: CALCIUM
     Dosage: UNK
     Route: 065

REACTIONS (3)
  - Hereditary angioedema [Not Recovered/Not Resolved]
  - Hospitalisation [Unknown]
  - Vascular device infection [Unknown]
